FAERS Safety Report 18963024 (Version 3)
Quarter: 2021Q4

REPORT INFORMATION
  Report Type: Report from Study
  Country: FR (occurrence: FR)
  Receive Date: 20210303
  Receipt Date: 20211123
  Transmission Date: 20220303
  Serious: Yes (Hospitalization)
  Sender: FDA-Public Use
  Company Number: NVSC2021FR037267

PATIENT
  Age: 73 Year
  Sex: Female
  Weight: 54.65 kg

DRUGS (14)
  1. UNSPECIFIED INGREDIENT [Suspect]
     Active Substance: UNSPECIFIED INGREDIENT
     Indication: Non-small cell lung cancer metastatic
     Dosage: NO TREATMENT
     Route: 065
  2. SPARTALIZUMAB [Suspect]
     Active Substance: SPARTALIZUMAB
     Indication: Non-small cell lung cancer metastatic
     Dosage: 400 MG, Q4W
     Route: 042
     Dates: start: 20201210
  3. CAPMATINIB [Suspect]
     Active Substance: CAPMATINIB
     Indication: Non-small cell lung cancer metastatic
     Dosage: 400 MG, BID
     Route: 048
     Dates: start: 20201210, end: 20210129
  4. CAPMATINIB [Suspect]
     Active Substance: CAPMATINIB
     Dosage: 300 MG, BID
     Route: 048
     Dates: start: 20210209
  5. FUROSEMIDE [Concomitant]
     Active Substance: FUROSEMIDE
     Indication: Oedema
     Dosage: 20 MG, QD
     Route: 048
     Dates: start: 20210129, end: 20210205
  6. FUROSEMIDE [Concomitant]
     Active Substance: FUROSEMIDE
     Dosage: 20 MG, QD
     Route: 065
     Dates: start: 20210213
  7. ATENOLOL [Concomitant]
     Active Substance: ATENOLOL
     Indication: Atrial fibrillation
     Dosage: 50 MG, QD
     Route: 048
     Dates: start: 20201209, end: 20210212
  8. ATENOLOL [Concomitant]
     Active Substance: ATENOLOL
     Dosage: 20 MG, QD
     Route: 048
     Dates: start: 20210213
  9. SOLUPRED [Concomitant]
     Indication: Oedema
     Dosage: 40 MG, QD
     Route: 048
     Dates: start: 20210129, end: 20210201
  10. INNOVAIR [Concomitant]
     Active Substance: BECLOMETHASONE DIPROPIONATE\FORMOTEROL
     Indication: Non-small cell lung cancer
     Dosage: 200/6 UG, BID
     Route: 055
     Dates: start: 20201127
  11. ELIQUIS [Concomitant]
     Active Substance: APIXABAN
     Indication: Respiratory distress
     Dosage: 5 MG, BID
     Route: 048
     Dates: start: 20201208
  12. ACETAMINOPHEN [Concomitant]
     Active Substance: ACETAMINOPHEN
     Indication: General physical condition
     Dosage: 1000 MG, PRN
     Route: 065
     Dates: start: 20201209, end: 20201210
  13. AUGMENTIN [Concomitant]
     Active Substance: AMOXICILLIN\CLAVULANATE POTASSIUM
     Indication: Peripheral swelling
     Dosage: 1000/125 MG, TID
     Route: 048
     Dates: start: 20210210, end: 20210217
  14. AERIUS [Concomitant]
     Indication: Prophylaxis
     Dosage: 5 MG, QD
     Route: 048
     Dates: start: 20210223

REACTIONS (1)
  - Pleurisy [Recovered/Resolved]

NARRATIVE: CASE EVENT DATE: 20210129
